FAERS Safety Report 7995638-9 (Version None)
Quarter: 2011Q4

REPORT INFORMATION
  Report Type: 
  Country: None (occurrence: None)
  Receive Date: 20111220
  Receipt Date: 20111026
  Transmission Date: 20120403
  Serious: Yes (Other)
  Sender: FDA-Public Use
  Company Number: US-PURDUE-USA-2011-0079807

PATIENT
  Sex: Male

DRUGS (2)
  1. OXYCONTIN [Suspect]
     Indication: BACK INJURY
     Dosage: UNK UNK, SEE TEXT
     Route: 048
  2. OXYCONTIN [Suspect]
     Indication: BACK INJURY
     Dosage: UNK, SEE TEXT
     Route: 048
     Dates: start: 20010316

REACTIONS (2)
  - DRUG DEPENDENCE [None]
  - SUICIDAL IDEATION [None]
